FAERS Safety Report 18942023 (Version 2)
Quarter: 2021Q1

REPORT INFORMATION
  Report Type: Spontaneous
  Country: US (occurrence: US)
  Receive Date: 20210225
  Receipt Date: 20210325
  Transmission Date: 20210420
  Serious: Yes (Other)
  Sender: FDA-Public Use
  Company Number: US-PFIZER INC-2021201590

PATIENT
  Age: 31 Year
  Sex: Male

DRUGS (1)
  1. DILANTIN [Suspect]
     Active Substance: PHENYTOIN
     Dosage: 300 MG, DAILY

REACTIONS (3)
  - Toxicity to various agents [Unknown]
  - Fall [Unknown]
  - Cerebellar atrophy [Unknown]

NARRATIVE: CASE EVENT DATE: 19970731
